FAERS Safety Report 4422425-0 (Version None)
Quarter: 2004Q3

REPORT INFORMATION
  Report Type: 
  Country: None (occurrence: None)
  Receive Date: 20040805
  Receipt Date: 20040720
  Transmission Date: 20050211
  Serious: Yes (Life-Threatening)
  Sender: FDA-Public Use
  Company Number: PHBS2004US09673

PATIENT
  Age: 32 Year
  Sex: Male

DRUGS (4)
  1. ZANAFLEX [Suspect]
     Dosage: 36 MG/D
     Route: 048
  2. BACLOFEN [Suspect]
  3. NEURONTIN [Concomitant]
  4. DITROPAN [Concomitant]

REACTIONS (3)
  - GLUCOSE-6-PHOSPHATE DEHYDROGENASE DEFICIENCY [None]
  - HAEMOGLOBIN DECREASED [None]
  - HAEMOLYSIS [None]
